FAERS Safety Report 13378925 (Version 3)
Quarter: 2017Q2

REPORT INFORMATION
  Report Type: Spontaneous
  Country: IT (occurrence: IT)
  Receive Date: 20170328
  Receipt Date: 20170616
  Transmission Date: 20170830
  Serious: No
  Sender: FDA-Public Use
  Company Number: IT-BIOGEN-2016BI00323375

PATIENT
  Age: 3 Year
  Sex: Male
  Weight: 15 kg

DRUGS (5)
  1. ELOCTA [Suspect]
     Active Substance: EFMOROCTOCOG ALFA
     Route: 065
     Dates: start: 20161123, end: 20161123
  2. ELOCTA [Suspect]
     Active Substance: EFMOROCTOCOG ALFA
     Dosage: 1000 IU (66 IU/KG)
     Route: 065
     Dates: start: 20161121, end: 20161121
  3. ELOCTA [Suspect]
     Active Substance: EFMOROCTOCOG ALFA
     Dosage: 66.6 IU/KG
     Route: 042
     Dates: start: 20161121, end: 20161121
  4. ELOCTA [Suspect]
     Active Substance: EFMOROCTOCOG ALFA
     Indication: HAEMOPHILIA
     Route: 065
  5. ELOCTA [Suspect]
     Active Substance: EFMOROCTOCOG ALFA
     Dosage: 83 IU/KG
     Route: 042
     Dates: start: 20161123, end: 20161123

REACTIONS (3)
  - Haemorrhage [Unknown]
  - Subcutaneous haematoma [Not Recovered/Not Resolved]
  - Drug effect incomplete [Not Recovered/Not Resolved]

NARRATIVE: CASE EVENT DATE: 20161122
